FAERS Safety Report 7954404-0 (Version None)
Quarter: 2011Q4

REPORT INFORMATION
  Report Type: 
  Country: None (occurrence: None)
  Receive Date: 20111202
  Receipt Date: 20111128
  Transmission Date: 20120403
  Serious: Yes (Hospitalization)
  Sender: FDA-Public Use
  Company Number: US-GLAXOSMITHKLINE-A0955256A

PATIENT
  Age: 63 Year
  Sex: Male

DRUGS (7)
  1. NEURONTIN [Concomitant]
  2. DURAGESIC-100 [Concomitant]
  3. PRILOSEC [Concomitant]
  4. XANAX [Concomitant]
  5. ADVAIR DISKUS 100/50 [Suspect]
     Indication: ASTHMA
     Dosage: 1PUFF TWICE PER DAY
     Route: 055
     Dates: start: 20100515, end: 20111126
  6. BUPROPION HCL [Concomitant]
  7. SIMVASTATIN [Concomitant]

REACTIONS (8)
  - ADRENAL DISORDER [None]
  - DISSOCIATION [None]
  - FATIGUE [None]
  - PNEUMONIA [None]
  - HYPERHIDROSIS [None]
  - ASTHENIA [None]
  - FEAR [None]
  - TREMOR [None]
